FAERS Safety Report 8399273-2 (Version None)
Quarter: 2012Q2

REPORT INFORMATION
  Report Type: 
  Country: None (occurrence: None)
  Receive Date: 20120531
  Receipt Date: 20120525
  Transmission Date: 20120825
  Serious: Yes (Hospitalization)
  Sender: FDA-Public Use
  Company Number: FR-GLAXOSMITHKLINE-B0803983A

PATIENT
  Sex: Female

DRUGS (2)
  1. LAMICTAL [Suspect]
     Indication: EPILEPSY
     Route: 048
     Dates: start: 20110216, end: 20110316
  2. DEPAKENE [Suspect]
     Indication: EPILEPSY
     Route: 048
     Dates: start: 20110216, end: 20110316

REACTIONS (14)
  - DRUG RASH WITH EOSINOPHILIA AND SYSTEMIC SYMPTOMS [None]
  - RASH MACULO-PAPULAR [None]
  - HYPERAMMONAEMIA [None]
  - PYREXIA [None]
  - RESPIRATORY DISTRESS [None]
  - RASH MORBILLIFORM [None]
  - FACE OEDEMA [None]
  - TOXIC SKIN ERUPTION [None]
  - LYMPHADENOPATHY [None]
  - OXYGEN SATURATION DECREASED [None]
  - SKIN TEST POSITIVE [None]
  - HEPATOCELLULAR INJURY [None]
  - LEUKOCYTOSIS [None]
  - EOSINOPHILIA [None]
